FAERS Safety Report 6065408-X (Version None)
Quarter: 2009Q1

REPORT INFORMATION
  Report Type: 
  Country: None (occurrence: None)
  Receive Date: 20090204
  Receipt Date: 20090128
  Transmission Date: 20090719
  Serious: Yes (Death)
  Sender: FDA-Public Use
  Company Number: US-WATSON-2009-00573

PATIENT
  Age: 39 Year
  Sex: Female

DRUGS (11)
  1. NAPROXEN SODIUM [Suspect]
     Indication: DRUG USE FOR UNKNOWN INDICATION
     Dosage: UNKNOWN
     Dates: end: 20070101
  2. CLONAZEPAM [Suspect]
     Indication: DRUG USE FOR UNKNOWN INDICATION
     Dosage: UNK
     Dates: end: 20070101
  3. TRAMADOL HYDROCHLORIDE (WATSON LABORATORIES) [Suspect]
     Indication: DRUG USE FOR UNKNOWN INDICATION
     Dosage: UNK
     Dates: end: 20070101
  4. CARISOPRODOL (WATSON LABORATORIES) [Suspect]
     Indication: DRUG USE FOR UNKNOWN INDICATION
     Dosage: UNK
     Dates: end: 20070101
  5. TRAZODONE HYDROCHLORIDE [Suspect]
     Indication: DRUG USE FOR UNKNOWN INDICATION
     Dosage: UNK
     Dates: end: 20070101
  6. ACETAMINOPHEN W/OPIOID [Suspect]
     Indication: DRUG USE FOR UNKNOWN INDICATION
  7. QUETIAPINE FUMARATE [Suspect]
     Indication: DRUG USE FOR UNKNOWN INDICATION
  8. DULOXETINE [Suspect]
     Indication: DRUG USE FOR UNKNOWN INDICATION
  9. FEXOFENADINE [Suspect]
     Indication: DRUG USE FOR UNKNOWN INDICATION
  10. THYROID PREPARATIONS [Suspect]
     Indication: DRUG USE FOR UNKNOWN INDICATION
  11. ETHANOL [Suspect]
     Indication: DRUG USE FOR UNKNOWN INDICATION

REACTIONS (1)
  - DEATH [None]
